FAERS Safety Report 9198949 (Version 1)
Quarter: 2013Q1

REPORT INFORMATION
  Report Type: Spontaneous
  Country: US (occurrence: US)
  Receive Date: 20130329
  Receipt Date: 20130329
  Transmission Date: 20140127
  Serious: No
  Sender: FDA-Public Use
  Company Number: US-009507513-1210USA002618

PATIENT
  Sex: 0

DRUGS (3)
  1. CLARITIN-D 24 HOUR [Suspect]
     Indication: NASOPHARYNGITIS
     Dosage: UNK
  2. CLARITIN-D 24 HOUR [Suspect]
     Indication: RHINORRHOEA
  3. CLARITIN-D 24 HOUR [Suspect]
     Indication: NASAL DISCOMFORT

REACTIONS (1)
  - Drug ineffective [Unknown]
